FAERS Safety Report 8916717 (Version 1)
Quarter: 2012Q4

REPORT INFORMATION
  Report Type: 
  Country: JP (occurrence: JP)
  Receive Date: 20121120
  Receipt Date: 20121120
  Transmission Date: 20130627
  Serious: Yes (Other)
  Sender: FDA-Public Use
  Company Number: JP-009507513-1211JPN006882

PATIENT
  Age: 51 Year
  Sex: Female
  Weight: 69 kg

DRUGS (8)
  1. PEGINTRON [Suspect]
     Indication: CHRONIC HEPATITIS C
     Dosage: 100 Microgram per kilogram, qw
     Route: 048
     Dates: start: 20120904
  2. REBETOL [Suspect]
     Indication: CHRONIC HEPATITIS C
     Dosage: 800 mg, qd
     Route: 048
     Dates: start: 20120904
  3. TELAVIC [Suspect]
     Indication: CHRONIC HEPATITIS C
     Dosage: 2250 mg, qd
     Route: 048
     Dates: start: 20120904, end: 20120910
  4. TELAVIC [Suspect]
     Dosage: 1500 mg, qd
     Route: 048
     Dates: start: 20120911
  5. URSO [Concomitant]
     Indication: CHRONIC HEPATITIS C
     Dosage: 9 DF, qd
     Route: 048
  6. GLYCYRON [Concomitant]
     Indication: CHRONIC HEPATITIS C
     Dosage: 6 DF, qd
     Route: 048
  7. GASTER [Concomitant]
     Indication: PROPHYLAXIS
     Dosage: 20 mg, qd
     Route: 048
  8. NAUZELIN [Concomitant]
     Indication: PROPHYLAXIS
     Dosage: 10 mg, qd as needed
     Route: 048
     Dates: end: 20120910

REACTIONS (2)
  - Vomiting [Recovering/Resolving]
  - Decreased appetite [Recovered/Resolved]
